FAERS Safety Report 25918898 (Version 1)
Quarter: 2025Q4

REPORT INFORMATION
  Report Type: Spontaneous
  Country: US (occurrence: US)
  Receive Date: 20251014
  Receipt Date: 20251014
  Transmission Date: 20260118
  Serious: Yes (Other)
  Sender: BAYER HEALTHCARE LLC
  Company Number: US-BAYER-2025A135005

PATIENT

DRUGS (1)
  1. CORICIDIN HBP MAXIMUM STRENGTH NIGHTTIME COLD AND FLU [Suspect]
     Active Substance: ACETAMINOPHEN\DEXTROMETHORPHAN HYDROBROMIDE\DOXYLAMINE SUCCINATE
     Indication: Cold urticaria
     Dosage: UNK
     Route: 048

REACTIONS (1)
  - Blood pressure increased [Unknown]
